FAERS Safety Report 16746594 (Version 1)
Quarter: 2019Q3

REPORT INFORMATION
  Report Type: Report from Study
  Country: GB (occurrence: GB)
  Receive Date: 20190827
  Receipt Date: 20190827
  Transmission Date: 20191005
  Serious: Yes (Hospitalization)
  Sender: FDA-Public Use
  Company Number: GB-MYLANLABS-2019M1079721

PATIENT
  Sex: Female

DRUGS (22)
  1. LETROZOLE. [Suspect]
     Active Substance: LETROZOLE
     Indication: BREAST CANCER
     Dosage: 2.5 MILLIGRAM, QD
     Route: 048
     Dates: start: 201709
  2. FLUCLOXACILLIN [Concomitant]
     Active Substance: FLUCLOXACILLIN
     Indication: SKIN INFECTION
     Route: 048
     Dates: start: 20180803, end: 20180810
  3. TRASTUZUMAB. [Suspect]
     Active Substance: TRASTUZUMAB
     Indication: BREAST CANCER
     Dosage: 600 MILLIGRAM
     Route: 058
     Dates: start: 20170918, end: 20181205
  4. SALBUTAMOL [Concomitant]
     Active Substance: ALBUTEROL
     Dosage: 100 MICROGRAM, PRN
     Route: 055
  5. CITALOPRAM [Concomitant]
     Active Substance: CITALOPRAM HYDROBROMIDE
     Route: 048
  6. ZOMORPH [Concomitant]
     Active Substance: MORPHINE SULFATE
     Dosage: 280 MILLIGRAM, QD
     Route: 048
     Dates: start: 20171002, end: 20190116
  7. CASSIA ACUTIFOLIA [Concomitant]
     Dosage: 2 DOSAGE FORM, QD
     Route: 048
  8. GABAPENTIN. [Concomitant]
     Active Substance: GABAPENTIN
     Dosage: 600 MILLIGRAM, QD
     Dates: start: 20181220
  9. LANSOPRAZOLE. [Concomitant]
     Active Substance: LANSOPRAZOLE
     Route: 048
  10. IBUPROFEN. [Concomitant]
     Active Substance: IBUPROFEN
     Route: 048
  11. PARACETAMOL [Concomitant]
     Active Substance: ACETAMINOPHEN
     Route: 048
  12. ZOMORPH [Concomitant]
     Active Substance: MORPHINE SULFATE
     Dosage: 200 UNK
     Route: 048
  13. CALCICHEW D3 FORTE [Concomitant]
     Active Substance: CALCIUM\CHOLECALCIFEROL
     Dosage: DOSE: 1 TABLET
     Route: 048
     Dates: start: 20171007
  14. ORAMORPH [Concomitant]
     Active Substance: MORPHINE SULFATE
     Dosage: 20 MILLIGRAM, PRN
     Route: 048
     Dates: end: 20171002
  15. FLU VACCINE VII [Concomitant]
     Active Substance: INFLUENZA VIRUS VACCINE
     Indication: ANTIVIRAL PROPHYLAXIS
     Route: 058
     Dates: start: 20171211, end: 20171211
  16. NITROFURANTOIN. [Concomitant]
     Active Substance: NITROFURANTOIN
     Indication: URINARY TRACT INFECTION
     Route: 048
     Dates: start: 20190124, end: 20190127
  17. AMOXICILLIN. [Concomitant]
     Active Substance: AMOXICILLIN
     Indication: SINUSITIS
     Route: 048
     Dates: start: 20180911, end: 20180918
  18. DENOSUMAB [Concomitant]
     Active Substance: DENOSUMAB
     Route: 058
     Dates: start: 20171007, end: 20181120
  19. TRASTUZUMAB. [Suspect]
     Active Substance: TRASTUZUMAB
     Dosage: 350 MILLIGRAM, Q3W
     Route: 042
     Dates: start: 20190115
  20. GABAPENTIN. [Concomitant]
     Active Substance: GABAPENTIN
     Indication: MUSCULOSKELETAL CHEST PAIN
     Dosage: 300MG MORNING AND 600MG EVENING
     Route: 048
     Dates: start: 20181229
  21. ZOMORPH [Concomitant]
     Active Substance: MORPHINE SULFATE
     Dosage: 480 MILLIGRAM, QD
     Route: 048
     Dates: start: 20190116
  22. LAXIDO [Concomitant]
     Active Substance: POLYETHYLENE GLYCOL 3350\POTASSIUM CHLORIDE\SODIUM BICARBONATE\SODIUM CHLORIDE
     Dosage: DOSE: 1 SACHET
     Route: 048

REACTIONS (6)
  - Hypoaesthesia [Not Recovered/Not Resolved]
  - Musculoskeletal pain [Recovered/Resolved]
  - Pain in extremity [Not Recovered/Not Resolved]
  - Skin infection [Recovered/Resolved]
  - Neck pain [Recovered/Resolved]
  - Sinusitis [Recovered/Resolved]

NARRATIVE: CASE EVENT DATE: 20180305
